FAERS Safety Report 10013630 (Version 3)
Quarter: 2014Q1

REPORT INFORMATION
  Report Type: Spontaneous
  Country: US (occurrence: US)
  Receive Date: 20140315
  Receipt Date: 20140331
  Transmission Date: 20141002
  Serious: No
  Sender: FDA-Public Use
  Company Number: US-009507513-1403USA001296

PATIENT
  Age: 70 Year
  Sex: Female
  Weight: 77.98 kg

DRUGS (2)
  1. OXYTROL FOR WOMEN [Suspect]
     Indication: HYPERTONIC BLADDER
     Dosage: 1 DF, Q4D
     Route: 062
     Dates: start: 20140204, end: 20140216
  2. OLMETEC [Concomitant]
     Indication: HYPERTENSION
     Dosage: UNK, UNKNOWN

REACTIONS (5)
  - Application site erythema [Unknown]
  - Application site pruritus [Unknown]
  - Drug ineffective [Unknown]
  - Product adhesion issue [Unknown]
  - Product quality issue [Unknown]
